FAERS Safety Report 8197133-3 (Version None)
Quarter: 2012Q1

REPORT INFORMATION
  Report Type: 
  Country: None (occurrence: None)
  Receive Date: 20120309
  Receipt Date: 20120301
  Transmission Date: 20120608
  Serious: Yes (Hospitalization, Other)
  Sender: FDA-Public Use
  Company Number: US-ASTELLAS-2012US002465

PATIENT
  Age: 88 Year
  Sex: Male

DRUGS (3)
  1. ERLOTINIB HYDROCHLORIDE [Suspect]
     Indication: LUNG ADENOCARCINOMA
     Dosage: 150 MG, UID/QD
     Route: 048
     Dates: start: 20120201, end: 20120220
  2. SPRYCEL [Suspect]
     Dosage: 20 MG, UID/QD
     Route: 048
     Dates: start: 20120201, end: 20120218
  3. SPRYCEL [Suspect]
     Indication: LUNG ADENOCARCINOMA
     Dosage: 50 MG, UID/QD
     Route: 048
     Dates: start: 20120201, end: 20120218

REACTIONS (16)
  - PLEURAL EFFUSION [None]
  - HYPOXIA [None]
  - RHABDOMYOLYSIS [None]
  - DYSPNOEA [None]
  - HAEMOGLOBIN DECREASED [None]
  - PNEUMOTHORAX [None]
  - RASH MACULO-PAPULAR [None]
  - ASTHMA [None]
  - CHRONIC OBSTRUCTIVE PULMONARY DISEASE [None]
  - RASH ERYTHEMATOUS [None]
  - TACHYPNOEA [None]
  - PNEUMONIA [None]
  - PALLOR [None]
  - GENERAL PHYSICAL HEALTH DETERIORATION [None]
  - HYPERHIDROSIS [None]
  - RENAL FAILURE CHRONIC [None]
